FAERS Safety Report 6307622-1 (Version None)
Quarter: 2009Q3

REPORT INFORMATION
  Report Type: 
  Country: None (occurrence: None)
  Receive Date: 20090813
  Receipt Date: 20090731
  Transmission Date: 20100115
  Serious: Yes (Disabling, Other)
  Sender: FDA-Public Use
  Company Number: PHHY2009FR17049

PATIENT
  Sex: Male
  Weight: 69 kg

DRUGS (2)
  1. TAREG [Suspect]
     Indication: PROPHYLAXIS
     Dosage: 160 MG, BID
     Dates: start: 20081205
  2. TAREG [Suspect]
     Dosage: 160 MG, QD
     Dates: start: 20090130, end: 20090227

REACTIONS (5)
  - ARTHRALGIA [None]
  - GAIT DISTURBANCE [None]
  - HYPERAESTHESIA [None]
  - PAIN IN EXTREMITY [None]
  - PERIPHERAL VASCULAR DISORDER [None]
